FAERS Safety Report 4318809-1 (Version None)
Quarter: 2004Q1

REPORT INFORMATION
  Report Type: 
  Country: None (occurrence: None)
  Receive Date: 20040318
  Receipt Date: 20040311
  Transmission Date: 20041129
  Serious: Yes (Life-Threatening)
  Sender: FDA-Public Use
  Company Number: FR-GLAXOSMITHKLINE-B0326413A

PATIENT
  Age: 55 Year
  Sex: Male
  Weight: 68 kg

DRUGS (6)
  1. DEROXAT [Suspect]
     Indication: DEPRESSION
     Route: 048
     Dates: start: 20031101, end: 20040124
  2. BI-TILDIEM [Suspect]
     Route: 048
     Dates: end: 20040124
  3. TRIATEC [Concomitant]
     Dosage: 10MG TWICE PER DAY
     Route: 048
     Dates: start: 20031101
  4. CELECTOL [Concomitant]
     Dosage: 200MG PER DAY
     Route: 048
     Dates: start: 20031101
  5. VASTEN [Concomitant]
     Dosage: 20MG PER DAY
     Route: 048
  6. PLAVIX [Concomitant]
     Dosage: 75MG PER DAY
     Route: 048

REACTIONS (1)
  - CARDIAC FAILURE [None]
